FAERS Safety Report 5162359-X (Version None)
Quarter: 2006Q4

REPORT INFORMATION
  Report Type: 
  Country: None (occurrence: None)
  Receive Date: 20061130
  Receipt Date: 20061019
  Transmission Date: 20070319
  Serious: Yes (Hospitalization)
  Sender: FDA-Public Use
  Company Number: PHEH2006US13132

PATIENT
  Age: 54 Year
  Sex: Male

DRUGS (16)
  1. CELLCEPT [Suspect]
     Indication: RENAL TRANSPLANT
     Dosage: UNK, UNK
     Dates: start: 20051207
  2. PREDNISONE TAB [Suspect]
     Dates: start: 20051209
  3. HEMODIALYSIS [Concomitant]
  4. LASIX [Concomitant]
  5. NOVOLOG [Concomitant]
  6. LANTUS [Concomitant]
     Dates: start: 20050526
  7. COLACE [Concomitant]
  8. FLOMAX [Concomitant]
  9. LESCOL [Concomitant]
  10. TUMS [Concomitant]
  11. REGLAN [Concomitant]
  12. ATENOLOL [Concomitant]
  13. FLONASE [Concomitant]
  14. CLONIDINE [Concomitant]
  15. MAGNESIUM OXIDE [Concomitant]
  16. CYCLOSPORINE [Suspect]
     Indication: RENAL TRANSPLANT
     Dosage: 600 MG, QD
     Route: 048
     Dates: start: 20051209, end: 20060213

REACTIONS (3)
  - BLOOD CREATININE INCREASED [None]
  - CHRONIC ALLOGRAFT NEPHROPATHY [None]
  - DRUG EFFECT DECREASED [None]
